FAERS Safety Report 23710515 (Version 2)
Quarter: 2024Q2

REPORT INFORMATION
  Report Type: Spontaneous
  Country: US (occurrence: US)
  Receive Date: 20240405
  Receipt Date: 20240415
  Transmission Date: 20240716
  Serious: Yes (Other)
  Sender: FDA-Public Use
  Company Number: US-SUN PHARMACEUTICAL INDUSTRIES LTD-2024R1-440073

PATIENT
  Age: 66 Year
  Sex: Male

DRUGS (5)
  1. ATORVASTATIN [Suspect]
     Active Substance: ATORVASTATIN
     Indication: Product used for unknown indication
     Dosage: UNK
     Route: 065
  2. ORGOVYX [Suspect]
     Active Substance: RELUGOLIX
     Indication: Prostate cancer
     Dosage: 360 MILLIGRAM, ONE
     Route: 048
     Dates: start: 20231018, end: 20231018
  3. ORGOVYX [Suspect]
     Active Substance: RELUGOLIX
     Dosage: 240 MILLIGRAM, QD
     Route: 048
     Dates: start: 20231019, end: 20231030
  4. ORGOVYX [Suspect]
     Active Substance: RELUGOLIX
     Dosage: 120 MILLIGRAM, QD
     Route: 048
     Dates: start: 20231031, end: 20231105
  5. ORGOVYX [Suspect]
     Active Substance: RELUGOLIX
     Dosage: 120 MILLIGRAM, QD
     Route: 048
     Dates: start: 20231106

REACTIONS (8)
  - Diabetes mellitus [Unknown]
  - Brain fog [Not Recovered/Not Resolved]
  - Oedema peripheral [Unknown]
  - Dizziness [Unknown]
  - Hypertension [Unknown]
  - Orthostatic hypotension [Unknown]
  - Constipation [Unknown]
  - Incorrect dosage administered [Recovered/Resolved]

NARRATIVE: CASE EVENT DATE: 20231018
